FAERS Safety Report 15146615 (Version 3)
Quarter: 2018Q3

REPORT INFORMATION
  Report Type: Spontaneous
  Country: GB (occurrence: GB)
  Receive Date: 20180715
  Receipt Date: 20180817
  Transmission Date: 20181010
  Serious: Yes (Hospitalization, Other)
  Sender: FDA-Public Use
  Company Number: GB-ALVOGEN-2018-ALVOGEN-096786

PATIENT
  Age: 76 Year
  Sex: Female
  Weight: 72.6 kg

DRUGS (38)
  1. ANASTROZOLE. [Concomitant]
     Active Substance: ANASTROZOLE
     Indication: PRODUCT USED FOR UNKNOWN INDICATION
     Dosage: DAILY
     Route: 048
     Dates: start: 20180312, end: 20180328
  2. DALTEPARIN [Concomitant]
     Active Substance: DALTEPARIN
     Indication: PRODUCT USED FOR UNKNOWN INDICATION
     Dosage: UNITS (UNKNOWN, 1 IN 1 DAY)
     Route: 058
     Dates: start: 20180312, end: 20180322
  3. PROPOFOL. [Concomitant]
     Active Substance: PROPOFOL
     Indication: SEDATION
     Dosage: 10?30 MG
     Route: 042
     Dates: start: 20180312, end: 20180312
  4. MORPHINE SULFATE. [Concomitant]
     Active Substance: MORPHINE SULFATE
     Dosage: 2.5 ? 10 MG INTERMITTENT
     Route: 048
     Dates: start: 20180312, end: 20180313
  5. GENTAMICIN. [Suspect]
     Active Substance: GENTAMICIN
     Indication: PRODUCT USED FOR UNKNOWN INDICATION
     Dosage: 120.0MG AS REQUIRED
     Route: 065
     Dates: start: 20180313, end: 20180313
  6. PENTHROX [Suspect]
     Active Substance: METHOXYFLURANE
     Indication: PAIN
     Dosage: 6?10 PUFFS 99.9% METHOXYFLURANE AT 18:30 AND AT 19:45
     Route: 055
     Dates: start: 20180312, end: 20180312
  7. MACROGOL [Concomitant]
     Active Substance: POLYETHYLENE GLYCOLS
     Indication: PRODUCT USED FOR UNKNOWN INDICATION
     Dosage: 1 SACHET 1 DAILY
     Route: 048
     Dates: start: 20180313, end: 20180328
  8. METARAMINOL [Concomitant]
     Active Substance: METARAMINOL
     Indication: PRODUCT USED FOR UNKNOWN INDICATION
     Dosage: 0.5MG INTERMITTENT
     Route: 042
     Dates: start: 20180313, end: 20180313
  9. AMITRIPTYLINE [Concomitant]
     Active Substance: AMITRIPTYLINE
     Indication: PRODUCT USED FOR UNKNOWN INDICATION
     Route: 048
     Dates: start: 20180312, end: 20180313
  10. LISINOPRIL. [Suspect]
     Active Substance: LISINOPRIL
     Indication: PRODUCT USED FOR UNKNOWN INDICATION
     Route: 048
     Dates: start: 20180314, end: 20180326
  11. MORPHINE [Concomitant]
     Active Substance: MORPHINE
     Indication: PRODUCT USED FOR UNKNOWN INDICATION
     Route: 042
     Dates: start: 20180313, end: 20180313
  12. MORPHINE SULFATE. [Concomitant]
     Active Substance: MORPHINE SULFATE
     Indication: PAIN
     Dosage: 2.5 ? 10 MG INTERMITTENT
     Route: 048
     Dates: start: 20180312, end: 20180315
  13. SODIUM CHLORIDE. [Concomitant]
     Active Substance: SODIUM CHLORIDE
     Indication: PRODUCT USED FOR UNKNOWN INDICATION
     Dates: start: 20180317, end: 20180319
  14. VANCOMYCIN [Suspect]
     Active Substance: VANCOMYCIN
     Indication: INFECTION
     Dosage: 1000 MG, IN SODIUM CHLORIDE 0.9% 250 ML INFUSION
     Route: 042
     Dates: start: 20180314, end: 20180315
  15. PARACETAMOL [Concomitant]
     Active Substance: ACETAMINOPHEN
     Indication: PAIN
     Dosage: 4 GRAMS DAILY, PARACETAMOL TABLET 1G OR INFUSION 1G
     Route: 042
     Dates: start: 20180313, end: 20180328
  16. SODIUM LACTATE. [Concomitant]
     Active Substance: SODIUM LACTATE
     Indication: PRODUCT USED FOR UNKNOWN INDICATION
     Dosage: 125 ML/HR CONTINUOUS INFUSION
     Route: 042
     Dates: start: 20180312, end: 20180317
  17. LEVOBUPIVACAINE [Concomitant]
     Active Substance: LEVOBUPIVACAINE
     Indication: PRODUCT USED FOR UNKNOWN INDICATION
     Dosage: ? INTERMITTENT
     Dates: start: 20180313, end: 20180313
  18. TRANEXAMIC ACID. [Concomitant]
     Active Substance: TRANEXAMIC ACID
     Indication: PRODUCT USED FOR UNKNOWN INDICATION
     Dosage: 1.0G INTERMITTENT
     Dates: start: 20180313, end: 20180313
  19. SODIUM SULFATE [Concomitant]
     Active Substance: SODIUM SULFATE
     Indication: PRODUCT USED FOR UNKNOWN INDICATION
     Dosage: 1000.0ML UNKNOWN
     Route: 042
     Dates: start: 20180317, end: 20180319
  20. SODIUM LACTATE. [Concomitant]
     Active Substance: SODIUM LACTATE
     Indication: PRODUCT USED FOR UNKNOWN INDICATION
     Route: 042
     Dates: start: 20180312, end: 20180317
  21. NALOXONE [Concomitant]
     Active Substance: NALOXONE
     Indication: PRODUCT USED FOR UNKNOWN INDICATION
     Dosage: 100.0UG/INHAL INTERMITTENT
     Route: 042
     Dates: start: 20180313, end: 20180314
  22. PROPOFOL. [Concomitant]
     Active Substance: PROPOFOL
     Indication: INJURY
     Route: 042
  23. SODIUM LACTATE. [Concomitant]
     Active Substance: SODIUM LACTATE
     Indication: PRODUCT USED FOR UNKNOWN INDICATION
     Dosage: 125 ML/HR CONTINUOUS INFUSION
     Route: 042
     Dates: start: 20180314, end: 20180314
  24. FENTANYL. [Concomitant]
     Active Substance: FENTANYL
     Indication: PRODUCT USED FOR UNKNOWN INDICATION
     Dosage: 25 ? 50 MCG INTERMITTENT
     Route: 042
     Dates: start: 20180313, end: 20180313
  25. CYCLIZINE [Concomitant]
     Active Substance: CYCLIZINE
     Indication: VOMITING
     Dosage: 50.0MG INTERMITTENT
     Route: 042
     Dates: start: 20180313, end: 20180314
  26. CYCLIZINE [Concomitant]
     Active Substance: CYCLIZINE
     Indication: VOMITING
     Dosage: INTERMITTENT
     Route: 042
  27. SODIUM LACTATE. [Concomitant]
     Active Substance: SODIUM LACTATE
     Indication: PRODUCT USED FOR UNKNOWN INDICATION
     Dosage: 100 ML/HR CONTINUOUS INFUSION
     Route: 042
     Dates: start: 20180313, end: 20180314
  28. CYCLIZINE [Concomitant]
     Active Substance: CYCLIZINE
     Indication: NAUSEA
     Dosage: 50.0MG INTERMITTENT
     Route: 042
     Dates: start: 20180313, end: 20180314
  29. PARACETAMOL [Concomitant]
     Active Substance: ACETAMINOPHEN
     Indication: PAIN
     Route: 042
     Dates: start: 20180312, end: 20180312
  30. IOHEXOL [Concomitant]
     Active Substance: IOHEXOL
     Indication: PRODUCT USED FOR UNKNOWN INDICATION
     Dosage: 70.0ML UNKNOWN
     Route: 042
     Dates: start: 20180319, end: 20180319
  31. PROPOFOL. [Concomitant]
     Active Substance: PROPOFOL
     Indication: SEDATION
     Route: 042
  32. AMITRIPTYLINE [Concomitant]
     Active Substance: AMITRIPTYLINE
     Indication: PRODUCT USED FOR UNKNOWN INDICATION
     Route: 048
     Dates: start: 20180317, end: 20180328
  33. SODIUM LACTATE. [Concomitant]
     Active Substance: SODIUM LACTATE
     Dosage: 100 ML/HR CONTINUOUS INFUSION
     Route: 042
     Dates: start: 20180313, end: 20180314
  34. LISINOPRIL. [Suspect]
     Active Substance: LISINOPRIL
     Indication: PRODUCT USED FOR UNKNOWN INDICATION
     Route: 048
     Dates: start: 20180419, end: 20180419
  35. VANCOMYCIN [Suspect]
     Active Substance: VANCOMYCIN
     Indication: INFECTION
     Dosage: IN SODIUM CHLORIDE 0.9% 50 ML INFUSION (1000 MG, AS REQUIRED)
     Route: 042
     Dates: start: 20180313, end: 20180313
  36. PROPOFOL. [Concomitant]
     Active Substance: PROPOFOL
     Indication: INJURY
     Dosage: 10?30 MG
     Route: 042
     Dates: start: 20180312, end: 20180312
  37. CYCLIZINE [Concomitant]
     Active Substance: CYCLIZINE
     Indication: NAUSEA
     Dosage: INTERMITTENT
     Route: 042
  38. LISINOPRIL. [Suspect]
     Active Substance: LISINOPRIL
     Indication: PRODUCT USED FOR UNKNOWN INDICATION
     Route: 048
     Dates: start: 20180326, end: 20180328

REACTIONS (2)
  - Acute kidney injury [Recovered/Resolved]
  - Pulmonary embolism [Recovering/Resolving]

NARRATIVE: CASE EVENT DATE: 20180314
